FAERS Safety Report 5140191-0 (Version None)
Quarter: 2006Q4

REPORT INFORMATION
  Report Type: 
  Country: None (occurrence: None)
  Receive Date: 20061031
  Receipt Date: 20061009
  Transmission Date: 20070319
  Serious: Yes (Hospitalization, Other)
  Sender: FDA-Public Use
  Company Number: US-BRISTOL-MYERS SQUIBB COMPANY-13535216

PATIENT
  Age: 71 Year
  Sex: Male

DRUGS (9)
  1. CISPLATIN [Suspect]
     Indication: GASTRIC CANCER
     Route: 041
     Dates: start: 20060911, end: 20060911
  2. TS-1 [Suspect]
     Indication: GASTRIC CANCER
     Route: 048
     Dates: start: 20060911, end: 20060914
  3. WARFARIN SODIUM [Concomitant]
     Indication: PROPHYLAXIS
     Route: 048
     Dates: start: 19900801
  4. DIGOXIN [Concomitant]
     Indication: ATRIAL FIBRILLATION
     Route: 048
  5. ZOCOR [Concomitant]
     Indication: HYPERLIPIDAEMIA
     Route: 048
     Dates: start: 20040630
  6. LOPRESSOR [Concomitant]
     Indication: HYPERTENSION
     Route: 048
  7. AVAPRO [Concomitant]
     Indication: HYPERTENSION
     Route: 048
     Dates: start: 20040701
  8. HYDROCHLOROTHIAZIDE [Concomitant]
     Indication: HYPERTENSION
     Route: 048
     Dates: start: 20040701
  9. ACIPHEX [Concomitant]
     Indication: GASTROOESOPHAGEAL REFLUX DISEASE
     Route: 048
     Dates: start: 20060701

REACTIONS (1)
  - GASTROINTESTINAL HAEMORRHAGE [None]
